FAERS Safety Report 14016594 (Version 1)
Quarter: 2017Q3

REPORT INFORMATION
  Report Type: Report from Study
  Country: MX (occurrence: MX)
  Receive Date: 20170927
  Receipt Date: 20170927
  Transmission Date: 20171128
  Serious: Yes (Death, Other)
  Sender: FDA-Public Use
  Company Number: MX-AMGEN-MEXSL2017145312

PATIENT
  Age: 71 Year
  Sex: Female

DRUGS (1)
  1. VECTIBIX [Suspect]
     Active Substance: PANITUMUMAB
     Indication: COLORECTAL CANCER METASTATIC
     Dosage: UNK, EVERY 15 DAYS
     Route: 042
     Dates: start: 2014, end: 20170530

REACTIONS (1)
  - Death [Fatal]

NARRATIVE: CASE EVENT DATE: 20170911
